FAERS Safety Report 6625907-6 (Version None)
Quarter: 2010Q1

REPORT INFORMATION
  Report Type: 
  Country: None (occurrence: None)
  Receive Date: 20100310
  Receipt Date: 20100219
  Transmission Date: 20100710
  Serious: Yes (Death)
  Sender: FDA-Public Use
  Company Number: JP-BAYER-201010642BYL

PATIENT
  Age: 67 Year
  Sex: Male

DRUGS (6)
  1. ADALAT CC [Suspect]
     Indication: HYPERTENSION
     Dosage: TOTAL DAILY DOSE: 20 MG  UNIT DOSE: 20 MG
     Route: 048
     Dates: start: 20091124
  2. ALDACTONE [Concomitant]
     Indication: HYPERTENSION
     Route: 048
     Dates: start: 20060922, end: 20100103
  3. GASTER D [Concomitant]
     Route: 048
     Dates: start: 20060922, end: 20100103
  4. ALLOPURINOL [Concomitant]
     Route: 048
     Dates: start: 20060922, end: 20100103
  5. NIPOLAZIN [Concomitant]
     Route: 048
     Dates: start: 20091217, end: 20100103
  6. EPOGIN INJ. 6000 [Concomitant]
     Route: 030
     Dates: start: 20090930, end: 20091217

REACTIONS (1)
  - SUDDEN DEATH [None]
